FAERS Safety Report 9496179 (Version 4)
Quarter: 2013Q4

REPORT INFORMATION
  Report Type: Spontaneous
  Country: AR (occurrence: AR)
  Receive Date: 20130904
  Receipt Date: 20131114
  Transmission Date: 20140711
  Serious: Yes (Hospitalization, Other)
  Sender: FDA-Public Use
  Company Number: AR-BRISTOL-MYERS SQUIBB COMPANY-19227529

PATIENT
  Age: 72 Year
  Sex: Female

DRUGS (4)
  1. SAXAGLIPTIN+METFORMIN HCL [Suspect]
     Indication: DIABETES MELLITUS
     Dosage: END DATE: 08.SEP.2013, 1 DF: 5/1000MG
     Route: 048
     Dates: start: 20130726
  2. SAXAGLIPTIN+METFORMIN HCL [Suspect]
     Indication: HYPERGLYCAEMIA
     Dosage: END DATE: 08.SEP.2013, 1 DF: 5/1000MG
     Route: 048
     Dates: start: 20130726
  3. INSULIN [Concomitant]
  4. METFORMIN [Concomitant]

REACTIONS (1)
  - Erythema multiforme [Recovered/Resolved]
